FAERS Safety Report 19077037 (Version 1)
Quarter: 2021Q1

REPORT INFORMATION
  Report Type: Spontaneous
  Country: US (occurrence: US)
  Receive Date: 20210330
  Receipt Date: 20210330
  Transmission Date: 20210420
  Serious: Yes (Other)
  Sender: FDA-Public Use
  Company Number: None

PATIENT
  Age: 26 Year
  Sex: Male
  Weight: 72 kg

DRUGS (1)
  1. MESALAMINE ER CAPSULES [Suspect]
     Active Substance: MESALAMINE
     Indication: COLITIS ULCERATIVE
     Route: 048
     Dates: start: 20210131, end: 20210315

REACTIONS (3)
  - Rhinorrhoea [None]
  - Gastrointestinal disorder [None]
  - Sneezing [None]

NARRATIVE: CASE EVENT DATE: 20210330
